FAERS Safety Report 26127097 (Version 1)
Quarter: 2025Q4

REPORT INFORMATION
  Report Type: Spontaneous
  Country: JP (occurrence: JP)
  Receive Date: 20251205
  Receipt Date: 20251205
  Transmission Date: 20260117
  Serious: Yes (Hospitalization, Other)
  Sender: BRISTOL-MYERS SQUIBB COMPANY
  Company Number: JP-ONO-2025JP021773

PATIENT
  Age: 82 Year
  Sex: Male
  Weight: 45.3 kg

DRUGS (26)
  1. OPDIVO [Suspect]
     Active Substance: NIVOLUMAB
     Indication: Oesophageal carcinoma
     Dosage: 240 MG, Q2W
     Route: 041
     Dates: start: 20230922, end: 20231124
  2. OPDIVO [Suspect]
     Active Substance: NIVOLUMAB
     Dosage: 480 MG, Q4W
     Route: 041
     Dates: start: 20231215, end: 20240607
  3. OPDIVO [Suspect]
     Active Substance: NIVOLUMAB
     Dosage: 480 MG, Q4W
     Route: 041
     Dates: start: 20240816, end: 20250606
  4. FLUOROURACIL [Concomitant]
     Active Substance: FLUOROURACIL
     Indication: Product used for unknown indication
     Dosage: UNK
     Dates: start: 20230405, end: 20230426
  5. FLUOROURACIL [Concomitant]
     Active Substance: FLUOROURACIL
     Dosage: 1000 MG?1ST COURSE OF FOLFOX
     Dates: start: 20250625, end: 20250626
  6. FLUOROURACIL [Concomitant]
     Active Substance: FLUOROURACIL
     Dosage: 1000 MG?2ND COURSE OF FOLFOX-CRT
     Dates: start: 20250723, end: 20250724
  7. OXALIPLATIN [Concomitant]
     Active Substance: OXALIPLATIN
     Indication: Product used for unknown indication
     Dosage: UNK
     Route: 041
     Dates: start: 20230405, end: 20230426
  8. OXALIPLATIN [Concomitant]
     Active Substance: OXALIPLATIN
     Dosage: 100 MG
     Route: 041
     Dates: start: 20250625, end: 20250625
  9. OXALIPLATIN [Concomitant]
     Active Substance: OXALIPLATIN
     Dosage: 100 MG
     Route: 041
     Dates: start: 20250723, end: 20250723
  10. LEVOFOLINATE [Concomitant]
     Indication: Product used for unknown indication
     Dosage: UNK
     Route: 041
     Dates: start: 20230405, end: 20230426
  11. LEVOFOLINATE [Concomitant]
     Dosage: 300 MG
     Route: 041
     Dates: start: 20250625, end: 20250625
  12. LEVOFOLINATE [Concomitant]
     Dosage: 300 MG
     Route: 041
     Dates: start: 20250723, end: 20250723
  13. CAMOSTAT MESYLATE [Concomitant]
     Active Substance: CAMOSTAT MESYLATE
     Indication: Product used for unknown indication
     Dosage: 100 MG, Q8H (AFTER EACH MEAL)
     Dates: start: 20230811
  14. LANSOPRAZOLE [Concomitant]
     Active Substance: LANSOPRAZOLE
     Indication: Product used for unknown indication
     Dosage: 15 MG, EVERYDAY (AFTER BREAKFAST)
     Dates: start: 20230831
  15. ELIQUIS [Concomitant]
     Active Substance: APIXABAN
     Indication: Product used for unknown indication
     Dosage: 2.5 MG, Q12H (AFTER BREAKFAST AND DINNER)
  16. DAYVIGO [Concomitant]
     Active Substance: LEMBOREXANT
     Indication: Product used for unknown indication
     Dosage: 5 MG, EVERYDAY (BEFORE BEDTIME)
     Dates: start: 20230515
  17. RACOL-NF [Concomitant]
     Indication: Product used for unknown indication
     Dosage: 400 ML, Q8H  (AFTER EACH MEAL)?ROUTE: ENTERAL
     Dates: start: 20230925
  18. SYMPROIC [Concomitant]
     Active Substance: NALDEMEDINE TOSYLATE
     Indication: Product used for unknown indication
     Dosage: 0.2 MG, EVERYDAY  (AFTER BREAKFAST)
     Dates: start: 20250523
  19. MAGNESIUM OXIDE [Concomitant]
     Active Substance: MAGNESIUM OXIDE
     Indication: Product used for unknown indication
     Dosage: 330 MG, Q8H (AFTER EACH MEAL)
     Dates: start: 20250404
  20. CARBOCYSTEINE [Concomitant]
     Active Substance: CARBOCYSTEINE
     Indication: Product used for unknown indication
     Dosage: 500 MG, Q8H (AFTER EACH MEAL)
     Dates: start: 20230302
  21. LINAGLIPTIN [Concomitant]
     Active Substance: LINAGLIPTIN
     Indication: Product used for unknown indication
     Dosage: 5 MG, EVERYDAY (AFTER BREAKFAST)
     Dates: start: 20230329, end: 20250801
  22. FENTANYL [Concomitant]
     Active Substance: FENTANYL
     Indication: Product used for unknown indication
     Dosage: 2 MG, EVERYDAY?DOSAGE FORM: TAPE (INCLUDING POULTICE)
     Dates: start: 20250523
  23. INSULIN GLARGINE [Concomitant]
     Active Substance: INSULIN GLARGINE
     Indication: Product used for unknown indication
     Dosage: 6 IU, EVERYDAY (IMMEDIATELY BEFORE BREAKFAST)
     Dates: start: 20230327
  24. ACETAMINOPHEN [Concomitant]
     Active Substance: ACETAMINOPHEN
     Indication: Pain
     Dosage: 500 MG, PRN (WHEN IN PAIN)
     Dates: start: 20230322
  25. SODIUM PICOSULFATE [Concomitant]
     Active Substance: SODIUM PICOSULFATE
     Indication: Constipation
     Dosage: 10 ML, PRN (WHEN EXPERIENCING CONSTIPATION)
     Dates: start: 20230302
  26. NOVAMIN [Concomitant]
     Indication: Nausea
     Dosage: 5 MG, PRN (WHEN FEELING QUEASY)
     Dates: start: 20230429

REACTIONS (6)
  - Hyperglycaemia [Recovering/Resolving]
  - Pneumonia pseudomonal [Unknown]
  - Immune-mediated lung disease [Recovering/Resolving]
  - Adrenal insufficiency [Unknown]
  - Immune-mediated adrenal insufficiency [Unknown]
  - Malignant neoplasm progression [Unknown]

NARRATIVE: CASE EVENT DATE: 20240712
